FAERS Safety Report 5228806-X (Version None)
Quarter: 2007Q1

REPORT INFORMATION
  Report Type: 
  Country: None (occurrence: None)
  Receive Date: 20070131
  Receipt Date: 20070122
  Transmission Date: 20070707
  Serious: Yes (Hospitalization)
  Sender: FDA-Public Use
  Company Number: L06-TUR-03075-01

PATIENT
  Age: 33 Year
  Sex: Male
  Weight: 83 kg

DRUGS (4)
  1. ESCITALOPRAM OXALATE [Suspect]
     Indication: BIPOLAR I DISORDER
  2. ESCITALOPRAM OXALATE [Suspect]
     Indication: BIPOLAR I DISORDER
     Dosage: 10 MG UNK
     Dates: start: 20040801, end: 20041207
  3. LITHIUM CARBONATE [Suspect]
     Indication: BIPOLAR I DISORDER
     Dosage: 1200 MG UNK
     Dates: start: 20040801, end: 20041207
  4. LAMOTRIGINE [Concomitant]

REACTIONS (18)
  - ALANINE AMINOTRANSFERASE INCREASED [None]
  - ASPARTATE AMINOTRANSFERASE INCREASED [None]
  - BLOOD CHLORIDE DECREASED [None]
  - BLOOD CREATINE PHOSPHOKINASE INCREASED [None]
  - BLOOD CREATINE PHOSPHOKINASE MB INCREASED [None]
  - BLOOD LACTATE DEHYDROGENASE INCREASED [None]
  - C-REACTIVE PROTEIN INCREASED [None]
  - CEREBELLAR SYNDROME [None]
  - ELECTROENCEPHALOGRAM ABNORMAL [None]
  - EPSTEIN-BARR VIRUS ANTIGEN POSITIVE [None]
  - HYPONATRAEMIA [None]
  - LYMPHOCYTE PERCENTAGE DECREASED [None]
  - NAUSEA [None]
  - PNEUMONIA [None]
  - RED BLOOD CELL SEDIMENTATION RATE INCREASED [None]
  - THERAPEUTIC AGENT TOXICITY [None]
  - TREMOR [None]
  - VOMITING [None]
